FAERS Safety Report 8081751-7 (Version None)
Quarter: 2012Q1

REPORT INFORMATION
  Report Type: 
  Country: None (occurrence: None)
  Receive Date: 20120130
  Receipt Date: 20120119
  Transmission Date: 20120608
  Serious: Yes (Hospitalization, Other)
  Sender: FDA-Public Use
  Company Number: US-ELI_LILLY_AND_COMPANY-US201002003436

PATIENT
  Sex: Female
  Weight: 81.633 kg

DRUGS (12)
  1. ASPIRIN /USA/ [Concomitant]
  2. PREMPRO [Concomitant]
  3. NAPROXEN (ALEVE) [Concomitant]
  4. NSAID'S [Concomitant]
  5. BYETTA [Suspect]
     Dosage: UNK, UNKNOWN
     Route: 065
     Dates: start: 20070201, end: 20070302
  6. TYLENOL                                 /SCH/ [Concomitant]
     Indication: HEADACHE
     Dates: start: 20000101
  7. LOPID [Concomitant]
     Indication: BLOOD CHOLESTEROL INCREASED
     Dosage: 600 MG, 2/D
     Dates: start: 20050101
  8. SYNTHROID [Concomitant]
  9. LOVAZA [Concomitant]
  10. BYETTA [Suspect]
     Dosage: UNK, UNKNOWN
     Route: 065
     Dates: start: 20070101, end: 20071101
  11. BYETTA [Suspect]
     Dosage: UNK, UNKNOWN
     Route: 065
     Dates: start: 20070709, end: 20071206
  12. METFFORMIN HYDROCHLORIDE [Concomitant]
     Indication: DIABETES MELLITUS
     Dates: start: 20050101, end: 20070201

REACTIONS (3)
  - DEVICE RELATED INFECTION [None]
  - ANGIOMYOLIPOMA [None]
  - PANCREATITIS ACUTE [None]
